FAERS Safety Report 17705946 (Version 1)
Quarter: 2020Q2

REPORT INFORMATION
  Report Type: Spontaneous
  Country: FR (occurrence: FR)
  Receive Date: 20200424
  Receipt Date: 20200424
  Transmission Date: 20200714
  Serious: Yes (Death)
  Sender: FDA-Public Use
  Company Number: FR-TEVA-2020-FR-1226269

PATIENT
  Age: 78 Year
  Sex: Male
  Weight: 53.8 kg

DRUGS (4)
  1. RITUXIMAB ((MAMMIFERE/HAMSTER/CELLULES CHO)) [Suspect]
     Active Substance: RITUXIMAB
     Indication: CENTRAL NERVOUS SYSTEM LYMPHOMA
     Dosage: 596.25 MG
     Route: 041
     Dates: start: 20190503, end: 20190503
  2. PROCARBAZINE [Suspect]
     Active Substance: PROCARBAZINE
     Indication: CENTRAL NERVOUS SYSTEM LYMPHOMA
     Dosage: 150 MG
     Route: 048
     Dates: start: 20190503
  3. METHOTREXATE. [Suspect]
     Active Substance: METHOTREXATE
     Indication: CENTRAL NERVOUS SYSTEM LYMPHOMA
     Dosage: 2385 MG
     Route: 041
     Dates: start: 20190503, end: 20190503
  4. VINCRISTINE (SULFATE DE) [Suspect]
     Active Substance: VINCRISTINE SULFATE
     Indication: CENTRAL NERVOUS SYSTEM LYMPHOMA
     Dosage: 2 MG
     Route: 041
     Dates: start: 20190503, end: 20190503

REACTIONS (2)
  - Acute kidney injury [Fatal]
  - Overdose [Fatal]

NARRATIVE: CASE EVENT DATE: 20190504
